FAERS Safety Report 6875307-9 (Version None)
Quarter: 2010Q3

REPORT INFORMATION
  Report Type: 
  Country: None (occurrence: None)
  Receive Date: 20100727
  Receipt Date: 20100714
  Transmission Date: 20110219
  Serious: Yes (Hospitalization, Other)
  Sender: FDA-Public Use
  Company Number: JP-PFIZER INC-2010074364

PATIENT
  Age: 58 Year
  Sex: Female
  Weight: 53 kg

DRUGS (4)
  1. AZULFIDINE [Suspect]
     Indication: RHEUMATOID ARTHRITIS
     Dosage: 250 MG, 2X/DAY
     Route: 048
     Dates: start: 20100601, end: 20100614
  2. CLINORIL [Concomitant]
     Indication: RHEUMATOID ARTHRITIS
     Dosage: 100 MG, 2X/DAY
     Route: 048
     Dates: start: 20070521
  3. GASTER [Concomitant]
     Indication: GASTRIC ULCER
     Dosage: 20 MG, 1X/DAY
     Route: 048
     Dates: start: 20070521
  4. SELBEX [Concomitant]
     Indication: GASTRIC ULCER
     Dosage: 0.5 G, 2X/DAY
     Route: 048
     Dates: start: 20070521

REACTIONS (7)
  - BLOOD PRESSURE INCREASED [None]
  - ERYTHEMA [None]
  - HEADACHE [None]
  - NAUSEA [None]
  - OEDEMA [None]
  - RASH GENERALISED [None]
  - SYSTEMIC LUPUS ERYTHEMATOSUS [None]
